FAERS Safety Report 4569706-8 (Version None)
Quarter: 2005Q1

REPORT INFORMATION
  Report Type: 
  Country: None (occurrence: None)
  Receive Date: 20050201
  Receipt Date: 20050119
  Transmission Date: 20050727
  Serious: Yes (Hospitalization, Other)
  Sender: FDA-Public Use
  Company Number: 2005016212

PATIENT
  Age: 92 Year
  Sex: Female

DRUGS (7)
  1. CELEBREX [Suspect]
     Indication: ILL-DEFINED DISORDER
     Dosage: (EVERYDAY), ORAL
     Route: 048
     Dates: end: 20040224
  2. DIGOXIN [Suspect]
     Indication: ILL-DEFINED DISORDER
     Dosage: (EVERY DAY), ORAL
     Route: 048
     Dates: end: 20040226
  3. URAPIDIL (URAPIDIL) [Suspect]
     Indication: ILL-DEFINED DISORDER
     Dosage: 60 MG (30 MG, 2 IN 1 D), ORAL
     Route: 048
     Dates: start: 20040221, end: 20040224
  4. CLOMIPRAMINE HCL [Suspect]
     Indication: ILL-DEFINED DISORDER
     Dosage: 10 MG (10 MG, 1 IN 1 D), ORAL
     Route: 048
     Dates: end: 20040224
  5. FLUINDIONE (FLUINDIONE) [Concomitant]
  6. BUSPIRONE HCL [Concomitant]
  7. ZOPICLONE (ZOPICLONE) [Concomitant]

REACTIONS (4)
  - HYPOTENSION [None]
  - LOSS OF CONSCIOUSNESS [None]
  - MALAISE [None]
  - RENAL FAILURE [None]
